FAERS Safety Report 23451912 (Version 1)
Quarter: 2024Q1

REPORT INFORMATION
  Report Type: Spontaneous
  Country: CA (occurrence: CA)
  Receive Date: 20240129
  Receipt Date: 20240129
  Transmission Date: 20240410
  Serious: Yes (Life-Threatening, Hospitalization)
  Sender: FDA-Public Use
  Company Number: CA-MYLANLABS-2024M1008121

PATIENT
  Age: 13 Year
  Sex: Female
  Weight: 75 kg

DRUGS (5)
  1. DESOGESTREL\ETHINYL ESTRADIOL [Suspect]
     Active Substance: DESOGESTREL\ETHINYL ESTRADIOL
     Indication: Menometrorrhagia
     Dosage: 1 DOSAGE FORM, QD, (1 EVERY 1 DAY)
     Route: 048
  2. ACETAMINOPHEN [Concomitant]
     Active Substance: ACETAMINOPHEN
     Dosage: UNK
     Route: 065
  3. INSULIN LISPRO [Concomitant]
     Active Substance: INSULIN LISPRO
     Dosage: UNK
     Route: 065
  4. MELATONIN [Concomitant]
     Active Substance: MELATONIN
     Dosage: UNK
     Route: 065
  5. NORETHINDRONE [Concomitant]
     Active Substance: NORETHINDRONE
     Dosage: UNK
     Route: 065

REACTIONS (8)
  - Cyanosis [Recovered/Resolved]
  - Deep vein thrombosis [Recovered/Resolved]
  - Fatigue [Recovered/Resolved]
  - Oedema peripheral [Recovered/Resolved]
  - Pain in extremity [Recovered/Resolved]
  - Pulmonary embolism [Recovered/Resolved]
  - Somnolence [Recovered/Resolved]
  - Venous thrombosis [Recovered/Resolved]
